FAERS Safety Report 6608512-7 (Version None)
Quarter: 2010Q1

REPORT INFORMATION
  Report Type: 
  Country: None (occurrence: None)
  Receive Date: 20100226
  Receipt Date: 20100226
  Transmission Date: 20100710
  Serious: Yes (Other)
  Sender: FDA-Public Use
  Company Number: None

PATIENT
  Age: 69 Year
  Sex: Female
  Weight: 79.3795 kg

DRUGS (3)
  1. GABAPENTIN [Suspect]
     Indication: DERMATITIS CONTACT
     Dosage: 300 MG TWICE DAILY
     Dates: start: 20091218, end: 20100218
  2. GABAPENTIN [Suspect]
     Indication: PAIN
     Dosage: 300 MG TWICE DAILY
     Dates: start: 20091218, end: 20100218
  3. GABAPENTIN [Suspect]
     Indication: PRURITUS
     Dosage: 300 MG TWICE DAILY
     Dates: start: 20091218, end: 20100218

REACTIONS (3)
  - INSOMNIA [None]
  - PAIN IN EXTREMITY [None]
  - RESTLESSNESS [None]
